FAERS Safety Report 25389249 (Version 2)
Quarter: 2025Q2

REPORT INFORMATION
  Report Type: Spontaneous
  Country: FR (occurrence: FR)
  Receive Date: 20250603
  Receipt Date: 20250614
  Transmission Date: 20250717
  Serious: Yes (Life-Threatening, Hospitalization)
  Sender: AUROBINDO
  Company Number: FR-BIOGARAN-B25000874

PATIENT
  Age: 60 Year
  Sex: Male

DRUGS (8)
  1. BISOPROLOL [Suspect]
     Active Substance: BISOPROLOL
     Indication: Arrhythmic storm
     Route: 048
  2. LIDOCAINE [Suspect]
     Active Substance: LIDOCAINE
     Indication: Arrhythmic storm
     Route: 042
  3. AMIODARONE [Suspect]
     Active Substance: AMIODARONE
     Indication: Arrhythmic storm
     Route: 042
  4. MAGNESIUM SULFATE [Suspect]
     Active Substance: MAGNESIUM SULFATE
     Indication: Arrhythmic storm
     Route: 042
  5. DOBUTAMINE [Suspect]
     Active Substance: DOBUTAMINE HYDROCHLORIDE
     Indication: Cardiogenic shock
     Route: 065
  6. HEPARIN [Concomitant]
     Active Substance: HEPARIN SODIUM
     Indication: Product used for unknown indication
     Route: 065
  7. TICAGRELOR [Concomitant]
     Active Substance: TICAGRELOR
     Indication: Product used for unknown indication
     Route: 065
  8. ASPIRIN [Concomitant]
     Active Substance: ASPIRIN
     Indication: Product used for unknown indication
     Route: 065

REACTIONS (4)
  - Drug ineffective [Unknown]
  - Therapy non-responder [Unknown]
  - Intentional product use issue [Unknown]
  - Off label use [Unknown]
